FAERS Safety Report 6814776-7 (Version None)
Quarter: 2010Q3

REPORT INFORMATION
  Report Type: 
  Country: None (occurrence: None)
  Receive Date: 20100702
  Receipt Date: 20100618
  Transmission Date: 20110219
  Serious: Yes (Hospitalization)
  Sender: FDA-Public Use
  Company Number: A0833394A

PATIENT
  Age: 59 Year
  Sex: Female
  Weight: 122.7 kg

DRUGS (1)
  1. AVANDIA [Suspect]
     Route: 048
     Dates: start: 20000101, end: 20070601

REACTIONS (7)
  - ACUTE CORONARY SYNDROME [None]
  - ACUTE RESPIRATORY FAILURE [None]
  - CHRONIC OBSTRUCTIVE PULMONARY DISEASE [None]
  - CORONARY ARTERY DISEASE [None]
  - MACULAR OEDEMA [None]
  - PNEUMONIA [None]
  - PNEUMONIA BACTERIAL [None]
